FAERS Safety Report 19573721 (Version 6)
Quarter: 2024Q1

REPORT INFORMATION
  Report Type: Report from Study
  Country: ES (occurrence: ES)
  Receive Date: 20210717
  Receipt Date: 20240227
  Transmission Date: 20240410
  Serious: Yes (Other)
  Sender: FDA-Public Use
  Company Number: ES-TAKEDA-2021TUS043241

PATIENT
  Age: 44 Year
  Sex: Male

DRUGS (18)
  1. TEDUGLUTIDE [Suspect]
     Active Substance: TEDUGLUTIDE
     Indication: Short-bowel syndrome
     Dosage: 1.4 MILLIGRAM, QD
     Route: 042
     Dates: start: 20190130, end: 20191015
  2. TEDUGLUTIDE [Suspect]
     Active Substance: TEDUGLUTIDE
     Indication: Short-bowel syndrome
     Dosage: 1.4 MILLIGRAM, QD
     Route: 042
     Dates: start: 20190130, end: 20191015
  3. TEDUGLUTIDE [Suspect]
     Active Substance: TEDUGLUTIDE
     Indication: Short-bowel syndrome
     Dosage: 1.4 MILLIGRAM, QD
     Route: 042
     Dates: start: 20190130, end: 20191015
  4. TEDUGLUTIDE [Suspect]
     Active Substance: TEDUGLUTIDE
     Indication: Short-bowel syndrome
     Dosage: 1.4 MILLIGRAM, QD
     Route: 042
     Dates: start: 20190130, end: 20191015
  5. RIFAXIMIN [Concomitant]
     Active Substance: RIFAXIMIN
     Indication: Gastrointestinal bacterial overgrowth
     Dosage: 2 CAPS, TID
     Route: 048
     Dates: start: 20201216
  6. SODIUM BICARBONATE [Concomitant]
     Active Substance: SODIUM BICARBONATE
     Indication: Metabolic acidosis
     Dosage: 500 MILLIGRAM, TID
     Route: 048
     Dates: start: 20200210
  7. ACETAMINOPHEN [Concomitant]
     Active Substance: ACETAMINOPHEN
     Indication: Pyrexia
     Dosage: 1 DOSAGE FORM, TID
     Route: 048
     Dates: start: 20190519, end: 20190520
  8. CALCIFEDIOL [Concomitant]
     Active Substance: CALCIFEDIOL
     Indication: Product used for unknown indication
     Dosage: 266 MILLIGRAM, 1/WEEK
     Route: 048
     Dates: start: 20150714
  9. TAUROLIDINE [Concomitant]
     Active Substance: TAUROLIDINE
     Indication: Device related infection
     Dosage: 2 MILLILITER, QD
     Route: 042
     Dates: start: 20230209
  10. ZEMPLAR [Concomitant]
     Active Substance: PARICALCITOL
     Indication: Hypovitaminosis
     Dosage: 1 MICROGRAM, 3/WEEK
     Route: 048
     Dates: start: 20230405
  11. TORSEMIDE [Concomitant]
     Active Substance: TORSEMIDE
     Indication: Hypertension
     Dosage: 10 MILLIGRAM, QD
     Route: 048
     Dates: start: 20230405
  12. ARANESP [Concomitant]
     Active Substance: DARBEPOETIN ALFA
     Indication: Anaemia
     Dosage: 40 MICROGRAM, 1/WEEK
     Route: 058
     Dates: start: 20220705, end: 20230214
  13. ARANESP [Concomitant]
     Active Substance: DARBEPOETIN ALFA
     Dosage: 200 MICROGRAM, 1/WEEK
     Route: 058
  14. OMEPRAZOLE [Concomitant]
     Active Substance: OMEPRAZOLE
     Indication: Gastritis prophylaxis
     Dosage: 20 MILLIGRAM, QD
     Route: 065
  15. Magnogene [Concomitant]
     Indication: Nephrolithiasis
     Dosage: 53 MILLIGRAM, BID
     Route: 065
  16. CALCIUM CARBONATE\CHOLECALCIFEROL [Concomitant]
     Active Substance: CALCIUM CARBONATE\CHOLECALCIFEROL
     Dosage: 1 INTERNATIONAL UNIT, QD
     Route: 065
  17. AUXINA E [Concomitant]
     Dosage: 400 INTERNATIONAL UNIT, TID
     Route: 065
  18. WARFARIN SODIUM [Concomitant]
     Active Substance: WARFARIN SODIUM
     Indication: Medical device site thrombosis
     Dosage: 1 MILLIGRAM, QD
     Route: 065

REACTIONS (5)
  - Device related thrombosis [Not Recovered/Not Resolved]
  - Lactic acidosis [Recovered/Resolved]
  - Nephrolithiasis [Recovered/Resolved]
  - Metabolic acidosis [Recovered/Resolved]
  - Oedema [Recovered/Resolved]

NARRATIVE: CASE EVENT DATE: 20201022
